FAERS Safety Report 5424010-0 (Version None)
Quarter: 2007Q3

REPORT INFORMATION
  Report Type: 
  Country: None (occurrence: None)
  Receive Date: 20070727
  Receipt Date: 20061010
  Transmission Date: 20080115
  Serious: Yes (Hospitalization)
  Sender: FDA-Public Use
  Company Number: THYM-11070

PATIENT
  Age: 60 Year
  Sex: Male
  Weight: 69.4003 kg

DRUGS (18)
  1. THYMOGLOBULIN [Suspect]
     Indication: RENAL TRANSPLANT
     Dosage: 100 MG QD IV
     Route: 042
     Dates: start: 20060218, end: 20060220
  2. ATORVASTATIN [Concomitant]
  3. METOPROLOL SUCCINATE [Concomitant]
  4. CINACALCET [Concomitant]
  5. IRON [Concomitant]
  6. VITAMIN E [Concomitant]
  7. ASCORBIC ACID [Concomitant]
  8. BACTRIM [Concomitant]
  9. MULTI-VITAMIN [Concomitant]
  10. RANITIDINE [Concomitant]
  11. PREDNISONE [Concomitant]
  12. TACROLIMUS [Concomitant]
  13. MYCOPHENOLATE MOFETIL [Concomitant]
  14. NIFEDIPINE [Concomitant]
  15. DOCUSATE [Concomitant]
  16. NYSTATIN [Concomitant]
  17. VALGANCICLOVIR HCL [Concomitant]
  18. RENAGEL [Concomitant]

REACTIONS (2)
  - CARBON DIOXIDE DECREASED [None]
  - HYPERKALAEMIA [None]
